FAERS Safety Report 22626007 (Version 1)
Quarter: 2023Q2

REPORT INFORMATION
  Report Type: Spontaneous
  Country: TR (occurrence: None)
  Receive Date: 20230620
  Receipt Date: 20230620
  Transmission Date: 20230721
  Serious: Yes (Other)
  Sender: FDA-Public Use
  Company Number: None

PATIENT
  Age: 41 Year
  Sex: Female
  Weight: 76.6 kg

DRUGS (1)
  1. SAXENDA [Suspect]
     Active Substance: LIRAGLUTIDE
     Indication: Insulin resistance
     Dates: start: 20230616, end: 20230618

REACTIONS (10)
  - Gastroenteritis [None]
  - Vomiting [None]
  - Diarrhoea [None]
  - Impaired gastric emptying [None]
  - Syncope [None]
  - Tinnitus [None]
  - Vision blurred [None]
  - Hyperhidrosis [None]
  - Fatigue [None]
  - Hypotonia [None]

NARRATIVE: CASE EVENT DATE: 20230618
